FAERS Safety Report 6294967-7 (Version None)
Quarter: 2009Q3

REPORT INFORMATION
  Report Type: 
  Country: None (occurrence: None)
  Receive Date: 20090803
  Receipt Date: 20090729
  Transmission Date: 20100115
  Serious: Yes (Hospitalization)
  Sender: FDA-Public Use
  Company Number: US-BRISTOL-MYERS SQUIBB COMPANY-14560700

PATIENT
  Age: 54 Year
  Sex: Male
  Weight: 72 kg

DRUGS (8)
  1. CYCLOPHOSPHAMIDE [Suspect]
     Indication: DIFFUSE LARGE B-CELL LYMPHOMA
     Dosage: ON DAY 1 OF 21 DAY CYCLE;THERAPY CONTINUED
     Route: 042
     Dates: start: 20090305, end: 20090305
  2. DOXORUBICIN HCL [Suspect]
     Indication: DIFFUSE LARGE B-CELL LYMPHOMA
     Dosage: ON DAY 1 OF 21 DAY CYCLE;THERAPY ONGOING
     Route: 042
     Dates: start: 20090305, end: 20090305
  3. RITUXIMAB [Suspect]
     Indication: DIFFUSE LARGE B-CELL LYMPHOMA
     Dosage: ON DAY 1 OF 21 DAY CYCLE;THERAPY ONGOING
     Route: 042
     Dates: start: 20090305, end: 20090305
  4. VINCRISTINE [Suspect]
     Indication: DIFFUSE LARGE B-CELL LYMPHOMA
     Dosage: ON DAY 1 OF 21 DAY CYCLE;THERAPY ONGOING
     Route: 042
     Dates: start: 20090305, end: 20090305
  5. PREDNISONE TAB [Suspect]
     Indication: DIFFUSE LARGE B-CELL LYMPHOMA
     Dosage: ON DAY 1 THROUGH 5;THERAPY ONGOING
     Route: 048
     Dates: start: 20090305, end: 20090305
  6. ENZASTAURIN [Suspect]
     Indication: DIFFUSE LARGE B-CELL LYMPHOMA
     Dosage: 1125MG:LOADING DOSE:DAY 2(06MAR09) 07MAR-13MAR09:500MG 22MAR-4APR09:250MG 500MG:05APR09-ONGOING
     Route: 048
     Dates: start: 20090306
  7. METOPROLOL TARTRATE [Concomitant]
     Dates: start: 20090306, end: 20090309
  8. METFORMIN [Concomitant]

REACTIONS (3)
  - FEBRILE NEUTROPENIA [None]
  - HYPOTENSION [None]
  - SEPSIS [None]
